FAERS Safety Report 7279284-0 (Version None)
Quarter: 2011Q1

REPORT INFORMATION
  Report Type: 
  Country: None (occurrence: None)
  Receive Date: 20110207
  Receipt Date: 20110125
  Transmission Date: 20110831
  Serious: Yes (Hospitalization, Other)
  Sender: FDA-Public Use
  Company Number: GB-WATSON-2011-01329

PATIENT
  Age: 60 Year
  Sex: Female

DRUGS (17)
  1. SIMVASTATIN [Suspect]
     Indication: PRODUCT USED FOR UNKNOWN INDICATION
     Dosage: 20 MG, QPM
  2. LYRICA [Suspect]
     Dosage: 75 MG, TID
     Dates: start: 20100701, end: 20100801
  3. PROMETHAZINE [Suspect]
     Indication: SLEEP DISORDER
  4. DIAZEPAM [Suspect]
     Indication: PRODUCT USED FOR UNKNOWN INDICATION
     Dosage: UNK
  5. LYRICA [Suspect]
     Dosage: 100 IN AM, 50 MID-DAY, 50 PM, UNKNOWN
  6. SERTRALINE HYDROCHLORIDE [Suspect]
     Dosage: 150 MG, UNKNOWN
  7. LYRICA [Suspect]
     Indication: GENERALISED ANXIETY DISORDER
     Dosage: 50 MG, TID
     Dates: start: 20100501, end: 20100913
  8. LYRICA [Suspect]
     Dosage: 100 MG, TID
  9. PROMETHAZINE [Suspect]
     Indication: ANXIETY
     Dosage: 50 MG, QHS
  10. ACETYLSALICYLIC ACID [Suspect]
     Indication: PRODUCT USED FOR UNKNOWN INDICATION
     Dosage: 75 MG, DAILY
  11. ATENOLOL [Suspect]
     Indication: PRODUCT USED FOR UNKNOWN INDICATION
     Dosage: 25 MG, DAILY
  12. SERTRALINE HYDROCHLORIDE [Suspect]
     Indication: PRODUCT USED FOR UNKNOWN INDICATION
     Dosage: 100 MG, DAILY
  13. SERTRALINE HYDROCHLORIDE [Suspect]
     Dosage: 100 MG, UNKNOWN
  14. DOSULEPIN [Suspect]
     Indication: DEPRESSION
     Dosage: 50 MG, DAILY
  15. CITALOPRAM HYDROBROMIDE [Suspect]
     Indication: PRODUCT USED FOR UNKNOWN INDICATION
     Dosage: UNK
  16. ATENOLOL [Suspect]
     Dosage: 15 MG, DAILY
  17. ZOPICLONE [Suspect]
     Indication: SLEEP DISORDER
     Dosage: 3 3/4 MG, DAILY

REACTIONS (27)
  - DEPRESSION [None]
  - INSOMNIA [None]
  - OVERDOSE [None]
  - HYPOCHONDRIASIS [None]
  - AGGRESSION [None]
  - ANXIETY [None]
  - DECREASED APPETITE [None]
  - DIZZINESS [None]
  - ANAEMIA [None]
  - LETHARGY [None]
  - PANIC ATTACK [None]
  - MALAISE [None]
  - MYALGIA [None]
  - MUSCLE TWITCHING [None]
  - MUSCLE ATROPHY [None]
  - TREMOR [None]
  - SUICIDAL IDEATION [None]
  - DIARRHOEA [None]
  - SYNCOPE [None]
  - HYPERHIDROSIS [None]
  - URINARY TRACT INFECTION [None]
  - VOMITING [None]
  - WEIGHT DECREASED [None]
  - CONFUSIONAL STATE [None]
  - NAUSEA [None]
  - ORAL DISCOMFORT [None]
  - PAIN [None]
